FAERS Safety Report 12557090 (Version 2)
Quarter: 2016Q3

REPORT INFORMATION
  Report Type: Report from Study
  Country: CA (occurrence: CA)
  Receive Date: 20160714
  Receipt Date: 20160818
  Transmission Date: 20161109
  Serious: Yes (Other)
  Sender: FDA-Public Use
  Company Number: CA-AMGEN-CANSL2016088505

PATIENT
  Age: 68 Year
  Sex: Male

DRUGS (1)
  1. PROLIA [Suspect]
     Active Substance: DENOSUMAB
     Indication: PRODUCT USED FOR UNKNOWN INDICATION
     Dosage: UNK, Q6MO
     Route: 065
     Dates: start: 20150929

REACTIONS (5)
  - Parkinson^s disease [Unknown]
  - Fracture [Unknown]
  - Bone density decreased [Unknown]
  - Wisdom teeth removal [Unknown]
  - Pruritus [Unknown]

NARRATIVE: CASE EVENT DATE: 201511
